FAERS Safety Report 5692414-7 (Version None)
Quarter: 2008Q2

REPORT INFORMATION
  Report Type: 
  Country: None (occurrence: None)
  Receive Date: 20080402
  Receipt Date: 20070522
  Transmission Date: 20081010
  Serious: No
  Sender: FDA-Public Use
  Company Number: US-BAYER-US-2007-018527

PATIENT
  Age: 70 Year
  Sex: Male
  Weight: 83 kg

DRUGS (3)
  1. LEUKINE [Suspect]
     Route: 058
     Dates: start: 20070521
  2. TYLENOL (CAPLET) [Concomitant]
  3. VFEND [Concomitant]

REACTIONS (2)
  - CHILLS [None]
  - PYREXIA [None]
